FAERS Safety Report 8365311-6 (Version None)
Quarter: 2012Q2

REPORT INFORMATION
  Report Type: 
  Country: None (occurrence: None)
  Receive Date: 20120516
  Receipt Date: 20120514
  Transmission Date: 20120825
  Serious: Yes (Hospitalization)
  Sender: FDA-Public Use
  Company Number: US-GILEAD-2012-0053959

PATIENT
  Sex: Female

DRUGS (1)
  1. LETAIRIS [Suspect]
     Indication: PULMONARY ARTERIAL HYPERTENSION
     Dosage: 5 MG, UNK
     Route: 048
     Dates: start: 20120322

REACTIONS (7)
  - DYSPNOEA [None]
  - ABDOMINAL PAIN UPPER [None]
  - NECK PAIN [None]
  - PRURITUS [None]
  - FLUID RETENTION [None]
  - OEDEMA PERIPHERAL [None]
  - PAIN [None]
